FAERS Safety Report 15152434 (Version 1)
Quarter: 2018Q3

REPORT INFORMATION
  Report Type: Spontaneous
  Country: ES (occurrence: ES)
  Receive Date: 20180717
  Receipt Date: 20180717
  Transmission Date: 20181010
  Serious: Yes (Hospitalization)
  Sender: FDA-Public Use
  Company Number: ES-TEVA-2018-ES-925917

PATIENT
  Age: 87 Year
  Sex: Female
  Weight: 52 kg

DRUGS (11)
  1. CITALOPRAM [Interacting]
     Active Substance: CITALOPRAM HYDROBROMIDE
     Dosage: 10 MILLIGRAM DAILY; 0?0?1
     Route: 048
     Dates: start: 2017
  2. FERROPROTINA [Concomitant]
     Route: 048
  3. OMEPRAZOLE DELAYED RELEASE CAPSULES,10 MG, 20 MG AND 30 MG [Interacting]
     Active Substance: OMEPRAZOLE
     Dosage: 20 MILLIGRAM DAILY; 1?0?0
     Route: 048
     Dates: start: 2017
  4. FUROSEMIDA (1615A) [Concomitant]
     Active Substance: FUROSEMIDE
     Dosage: 30 MILLIGRAM DAILY; 1?1/2?0
     Route: 048
     Dates: start: 2017
  5. ITRACONAZOL (2436A) [Interacting]
     Active Substance: ITRACONAZOLE
     Indication: SKIN CANDIDA
     Dosage: 1/24 HOURS, UNKNOWN DOSE
     Route: 048
     Dates: start: 20180327, end: 20180330
  6. SINEMET PLUS 25 MG/100 MG COMPRIMIDOS , 100 COMPRIMIDOS [Concomitant]
     Active Substance: CARBIDOPA\LEVODOPA
     Dosage: 25 MG/100 MG TABLETS, 100 TABLETS
     Route: 048
  7. ADIRO [Concomitant]
     Active Substance: ASPIRIN
     Route: 048
  8. ATORVASTATINA (7400A) [Suspect]
     Active Substance: ATORVASTATIN
     Dosage: 40 MILLIGRAM DAILY; 0?0?1
     Route: 048
     Dates: start: 2017
  9. IRBESARTAN (7406A) [Concomitant]
     Dosage: 75 MILLIGRAM DAILY; 0?0?1/2
     Route: 048
     Dates: start: 2017
  10. ESPIRONOLACTONA (326A) [Concomitant]
     Active Substance: SPIRONOLACTONE
     Dosage: 25 MILLIGRAM DAILY; 0?1?0
     Route: 048
     Dates: start: 2017
  11. EMULIQUENSIMPLE [Concomitant]
     Route: 065

REACTIONS (2)
  - Status epilepticus [Not Recovered/Not Resolved]
  - Drug interaction [Not Recovered/Not Resolved]

NARRATIVE: CASE EVENT DATE: 20180329
